FAERS Safety Report 8131623-4 (Version None)
Quarter: 2012Q1

REPORT INFORMATION
  Report Type: 
  Country: None (occurrence: None)
  Receive Date: 20120213
  Receipt Date: 20120131
  Transmission Date: 20120608
  Serious: Yes (Other)
  Sender: FDA-Public Use
  Company Number: US-CELGENEUS-163-21880-12010577

PATIENT
  Sex: Female

DRUGS (3)
  1. METOPROLOL SUCCINATE [Concomitant]
     Route: 065
  2. REVLIMID [Suspect]
     Indication: MULTIPLE MYELOMA
     Dosage: 10 MILLIGRAM
     Route: 048
     Dates: start: 20111209, end: 20111229
  3. SYNTHROID [Concomitant]
     Route: 065

REACTIONS (3)
  - DEMENTIA ALZHEIMER'S TYPE [None]
  - DEAFNESS [None]
  - FULL BLOOD COUNT DECREASED [None]
